FAERS Safety Report 8591013-7 (Version None)
Quarter: 2012Q3

REPORT INFORMATION
  Report Type: 
  Country: None (occurrence: None)
  Receive Date: 20120813
  Receipt Date: 20120808
  Transmission Date: 20120928
  Serious: Yes (Other)
  Sender: FDA-Public Use
  Company Number: BR-PFIZER INC-2012193512

PATIENT
  Age: 30 Year
  Sex: Female
  Weight: 44 kg

DRUGS (1)
  1. DOSTINEX [Suspect]
     Indication: LACTATION INHIBITION THERAPY
     Dosage: 0.5 MG, 1X/DAY
     Route: 048
     Dates: start: 20120804, end: 20120804

REACTIONS (9)
  - DRY MOUTH [None]
  - NECK PAIN [None]
  - TRACHEAL OBSTRUCTION [None]
  - RETCHING [None]
  - HEADACHE [None]
  - DIZZINESS [None]
  - LISTLESS [None]
  - SOMNOLENCE [None]
  - FEELING ABNORMAL [None]
